FAERS Safety Report 9860238 (Version 2)
Quarter: 2014Q1

REPORT INFORMATION
  Report Type: Spontaneous
  Country: US (occurrence: US)
  Receive Date: 20140201
  Receipt Date: 20140201
  Transmission Date: 20141002
  Serious: Yes (Other)
  Sender: FDA-Public Use
  Company Number: US-GE HEALTHCARE MEDICAL DIAGNOSTICS-OSCN-PR-0806S-0393

PATIENT
  Age: 75 Year
  Sex: Female

DRUGS (12)
  1. OMNISCAN [Suspect]
     Indication: DEAFNESS UNILATERAL
     Route: 042
     Dates: start: 20040408, end: 20040408
  2. OMNISCAN [Suspect]
     Indication: VISUAL ACUITY REDUCED
     Route: 042
     Dates: start: 20040430, end: 20040430
  3. GADOLINIUM (UNSPECIFIED) [Suspect]
     Indication: TYPE 2 DIABETES MELLITUS
     Dates: start: 20040629, end: 20040629
  4. GADOLINIUM (UNSPECIFIED) [Suspect]
     Indication: PERIPHERAL VASCULAR DISORDER
     Dates: start: 20041105, end: 20041105
  5. MAGNEVIST [Suspect]
     Indication: PITUITARY TUMOUR
     Dates: start: 20041026, end: 20041026
  6. MAGNEVIST [Suspect]
     Indication: DIZZINESS
     Dates: start: 20061114, end: 20061114
  7. MAGNEVIST [Suspect]
     Indication: BALANCE DISORDER
     Dates: start: 20040629, end: 20040629
  8. MAGNEVIST [Suspect]
     Dates: start: 20051108, end: 20051108
  9. COZAAR [Concomitant]
     Dates: start: 20040311, end: 20040518
  10. EPOGEN [Concomitant]
     Indication: HAEMATOCRIT
     Dates: start: 19991104, end: 20090106
  11. EPOGEN [Concomitant]
     Indication: HAEMOGLOBIN
  12. ARANESP [Concomitant]
     Dates: start: 20040311, end: 20040408

REACTIONS (1)
  - Nephrogenic systemic fibrosis [Not Recovered/Not Resolved]
